FAERS Safety Report 8798653 (Version 1)
Quarter: 2012Q4

REPORT INFORMATION
  Report Type: Spontaneous
  Country: US (occurrence: None)
  Receive Date: 20120917
  Receipt Date: 20120917
  Transmission Date: 20130627
  Serious: No
  Sender: FDA-Public Use
  Company Number: None

PATIENT
  Age: 30 Year
  Sex: Female
  Weight: 65.77 kg

DRUGS (1)
  1. MEFENAMIC ACID [Suspect]
     Indication: PAIN
     Dosage: 4 x day -q 6 hrs-
     Route: 048
     Dates: start: 20110705, end: 20120712

REACTIONS (4)
  - Nausea [None]
  - Vomiting projectile [None]
  - Dehydration [None]
  - Insomnia [None]
